FAERS Safety Report 11154951 (Version 1)
Quarter: 2015Q2

REPORT INFORMATION
  Report Type: Spontaneous
  Country: US (occurrence: US)
  Receive Date: 20150602
  Receipt Date: 20150602
  Transmission Date: 20150821
  Serious: No
  Sender: FDA-Public Use
  Company Number: US-SUN PHARMACEUTICAL INDUSTRIES LTD-2015SUN00641

PATIENT
  Age: 47 Year
  Sex: Male

DRUGS (2)
  1. BUPROPION HYDROCHLORIDE EXTENDED RELEASE SR [Suspect]
     Active Substance: BUPROPION HYDROCHLORIDE
     Dosage: 150 MG, BID
     Route: 048
  2. BUPROPION HYDROCHLORIDE EXTENDED RELEASE SR [Suspect]
     Active Substance: BUPROPION HYDROCHLORIDE
     Indication: DEPRESSION
     Dosage: 150 MG, OD
     Route: 048

REACTIONS (4)
  - Abnormal dreams [Recovering/Resolving]
  - Paraesthesia [Recovering/Resolving]
  - Nausea [Recovering/Resolving]
  - Product quality issue [Unknown]
